FAERS Safety Report 9390785 (Version 2)
Quarter: 2013Q3

REPORT INFORMATION
  Report Type: Spontaneous
  Country: US (occurrence: US)
  Receive Date: 20130709
  Receipt Date: 20130712
  Transmission Date: 20140515
  Serious: No
  Sender: FDA-Public Use
  Company Number: US-009507513-1307USA002166

PATIENT
  Sex: Female

DRUGS (1)
  1. COSOPT PF [Suspect]
     Dosage: 1 GTT, QD
     Route: 031
     Dates: start: 20130430

REACTIONS (5)
  - Drug dose omission [Unknown]
  - Drug prescribing error [Unknown]
  - Underdose [Unknown]
  - Product packaging quantity issue [Unknown]
  - No adverse event [Unknown]
